FAERS Safety Report 5194396-3 (Version None)
Quarter: 2006Q4

REPORT INFORMATION
  Report Type: 
  Country: None (occurrence: None)
  Receive Date: 20061228
  Receipt Date: 20061220
  Transmission Date: 20070319
  Serious: Yes (Other)
  Sender: FDA-Public Use
  Company Number: GB-PFIZER INC-2006155126

PATIENT
  Sex: Male

DRUGS (1)
  1. LIPITOR [Suspect]

REACTIONS (2)
  - DEMENTIA [None]
  - MEMORY IMPAIRMENT [None]
